FAERS Safety Report 4867478-0 (Version None)
Quarter: 2005Q4

REPORT INFORMATION
  Report Type: 
  Country: None (occurrence: None)
  Receive Date: 20051222
  Receipt Date: 20051211
  Transmission Date: 20060501
  Serious: No
  Sender: FDA-Public Use
  Company Number: 2005S1012027

PATIENT
  Age: 4 Year
  Sex: Female

DRUGS (1)
  1. CYSTAGON [Suspect]
     Indication: CYSTINOSIS

REACTIONS (2)
  - BIOPSY STOMACH ABNORMAL [None]
  - EROSIVE DUODENITIS [None]
